FAERS Safety Report 16717074 (Version 1)
Quarter: 2019Q3

REPORT INFORMATION
  Report Type: Spontaneous
  Country: JP (occurrence: JP)
  Receive Date: 20190819
  Receipt Date: 20190819
  Transmission Date: 20191005
  Serious: Yes (Other)
  Sender: FDA-Public Use
  Company Number: JP-ELI_LILLY_AND_COMPANY-JP201908004118

PATIENT
  Age: 69 Year
  Sex: Male

DRUGS (3)
  1. G LASTA [Concomitant]
     Active Substance: PEGFILGRASTIM
     Route: 041
  2. DOCETAXEL. [Suspect]
     Active Substance: DOCETAXEL
     Indication: LUNG NEOPLASM MALIGNANT
     Route: 041
  3. CYRAMZA [Suspect]
     Active Substance: RAMUCIRUMAB
     Indication: LUNG NEOPLASM MALIGNANT
     Dosage: UNK
     Route: 041
     Dates: start: 20190709

REACTIONS (3)
  - Conjunctival hyperaemia [Unknown]
  - Stevens-Johnson syndrome [Unknown]
  - Angular cheilitis [Unknown]
